FAERS Safety Report 18735764 (Version 8)
Quarter: 2021Q4

REPORT INFORMATION
  Report Type: Spontaneous
  Country: JP (occurrence: JP)
  Receive Date: 20210113
  Receipt Date: 20211213
  Transmission Date: 20220303
  Serious: Yes (Other)
  Sender: FDA-Public Use
  Company Number: JP-ONO-2021JP000734

PATIENT
  Age: 55 Year
  Sex: Female

DRUGS (2)
  1. BRAFTOVI [Suspect]
     Active Substance: ENCORAFENIB
     Indication: Malignant melanoma
     Dosage: 450 MG, QD, AFTER BREAKFAST
     Route: 048
     Dates: start: 20201218, end: 20201218
  2. MEKTOVI [Suspect]
     Active Substance: BINIMETINIB
     Indication: Malignant melanoma
     Dosage: 45 MG, BID, AFTER BREAKFAST AND SUPPER
     Route: 048
     Dates: start: 20201218, end: 20201218

REACTIONS (1)
  - Macular detachment [Recovered/Resolved]

NARRATIVE: CASE EVENT DATE: 20201218
